FAERS Safety Report 7612929-1 (Version None)
Quarter: 2011Q3

REPORT INFORMATION
  Report Type: 
  Country: None (occurrence: None)
  Receive Date: 20110708
  Receipt Date: 20110704
  Transmission Date: 20111222
  Serious: Yes (Other)
  Sender: FDA-Public Use
  Company Number: LTI2011A00158

PATIENT
  Age: 71 Year
  Sex: Male

DRUGS (6)
  1. CIBACENE (BENAZEPRIL HYDROCHLORIDE) [Concomitant]
  2. OMEPRAZOLE [Concomitant]
  3. CRESTOR [Concomitant]
  4. PROPRANOLOL [Concomitant]
  5. PIOGLITAZONE HYDROCHLORIDE/METFORMIN HYDROCHLORIDE [Suspect]
     Indication: TYPE 2 DIABETES MELLITUS
     Dosage: 2 TAB. (1 TAB., 2 IN 1 D), ORAL
     Route: 048
     Dates: start: 20101018, end: 20110606
  6. ASPIRIN [Concomitant]

REACTIONS (1)
  - BLADDER TRANSITIONAL CELL CARCINOMA STAGE I [None]
